FAERS Safety Report 10144471 (Version 1)
Quarter: 2014Q2

REPORT INFORMATION
  Report Type: Report from Study
  Country: BR (occurrence: BR)
  Receive Date: 20140430
  Receipt Date: 20140430
  Transmission Date: 20141212
  Serious: Yes (Hospitalization, Other)
  Sender: FDA-Public Use
  Company Number: BR-GILEAD-2014-0100962

PATIENT
  Age: 30 Year
  Sex: Male
  Weight: 77.5 kg

DRUGS (3)
  1. EMTRICITABINE/TENOFOVIR DISOPROXIL FUMARATE [Suspect]
     Indication: HIV INFECTION
     Dosage: 1 DF, QD
     Route: 048
     Dates: start: 20111013
  2. EFAVIRENZ [Suspect]
     Indication: HIV INFECTION
     Dosage: 600 MG, QD
     Route: 048
     Dates: start: 20110502
  3. COMBIVIR [Concomitant]
     Dosage: UNK UNK, BID
     Dates: start: 2011, end: 20111013

REACTIONS (1)
  - Fibrosarcoma [Recovered/Resolved]
